FAERS Safety Report 5167013-6 (Version None)
Quarter: 2006Q4

REPORT INFORMATION
  Report Type: 
  Country: None (occurrence: None)
  Receive Date: 20061207
  Receipt Date: 20061201
  Transmission Date: 20070319
  Serious: Yes (Other)
  Sender: FDA-Public Use
  Company Number: 2006PK02536

PATIENT
  Age: 43 Year
  Sex: Male

DRUGS (7)
  1. NEXIUM [Suspect]
     Indication: HEPATIC CIRRHOSIS
     Route: 048
     Dates: start: 20061021, end: 20061024
  2. ACETAMINOPHEN [Suspect]
     Indication: PAIN
     Route: 048
     Dates: start: 20061021, end: 20061023
  3. RIVOTRIL [Concomitant]
     Dates: start: 20061021
  4. LORAZEPAM [Concomitant]
     Dates: start: 20061021, end: 20061021
  5. SUCCINYLCHOLINE CHLORIDE [Concomitant]
     Dates: start: 20061021
  6. PENTOTHAL [Concomitant]
     Dates: start: 20061021
  7. NORADRENALIN [Concomitant]

REACTIONS (6)
  - CYTOLYTIC HEPATITIS [None]
  - HAEMODYNAMIC INSTABILITY [None]
  - HEPATOCELLULAR DAMAGE [None]
  - HYPOTENSION [None]
  - OXYGEN SATURATION DECREASED [None]
  - TACHYCARDIA [None]
